FAERS Safety Report 17965346 (Version 1)
Quarter: 2020Q2

REPORT INFORMATION
  Report Type: Spontaneous
  Country: DE (occurrence: DE)
  Receive Date: 20200630
  Receipt Date: 20200630
  Transmission Date: 20200714
  Serious: Yes (Other)
  Sender: FDA-Public Use
  Company Number: NVSC2020DE175808

PATIENT
  Age: 71 Year
  Sex: Male
  Weight: 76 kg

DRUGS (3)
  1. BISOPROLOL [Concomitant]
     Active Substance: BISOPROLOL
     Indication: ESSENTIAL HYPERTENSION
     Dosage: 20 MG, QD
     Route: 048
  2. DOXYCYCLIN 100 - 1 A PHARMA [Suspect]
     Active Substance: DOXYCYCLINE
     Indication: ERYTHEMA MIGRANS
  3. DOXYCYCLIN 100 - 1 A PHARMA [Suspect]
     Active Substance: DOXYCYCLINE
     Indication: ARTHROPOD BITE
     Dosage: 100 MG, TOTAL (TBL P.O.)
     Route: 048
     Dates: start: 20200422, end: 20200422

REACTIONS (11)
  - Epidermolysis [Unknown]
  - Skin necrosis [Unknown]
  - Paraesthesia [Unknown]
  - Toxicity to various agents [Recovering/Resolving]
  - Penile pain [Unknown]
  - Rash erythematous [Unknown]
  - Pain of skin [Unknown]
  - Erythema [Unknown]
  - Penile oedema [Unknown]
  - Erythema [Unknown]
  - Dermatitis allergic [Recovering/Resolving]

NARRATIVE: CASE EVENT DATE: 20200422
